FAERS Safety Report 14446237 (Version 2)
Quarter: 2018Q1

REPORT INFORMATION
  Report Type: Spontaneous
  Country: US (occurrence: US)
  Receive Date: 20180126
  Receipt Date: 20180309
  Transmission Date: 20180509
  Serious: Yes (Disabling, Other)
  Sender: FDA-Public Use
  Company Number: US-REGENERON PHARMACEUTICALS, INC.-2018-11366

PATIENT

DRUGS (3)
  1. EYLEA [Suspect]
     Active Substance: AFLIBERCEPT
     Indication: NEOVASCULAR AGE-RELATED MACULAR DEGENERATION
     Dosage: 2 MG, EVERY 8 WEEKS, OD
     Route: 031
     Dates: start: 20170626
  2. EYLEA [Suspect]
     Active Substance: AFLIBERCEPT
     Dosage: 2 MG, EVERY 8 WEEKS, OD, LAST DOSE
     Route: 031
     Dates: start: 20180115, end: 20180115
  3. AVASTIN [Concomitant]
     Active Substance: BEVACIZUMAB
     Indication: PRODUCT USED FOR UNKNOWN INDICATION
     Dosage: FELLOW EYE, OS

REACTIONS (4)
  - Retinal haemorrhage [Recovered/Resolved]
  - Eye inflammation [Recovered/Resolved]
  - Blindness transient [Recovered/Resolved]
  - Vitritis [Unknown]

NARRATIVE: CASE EVENT DATE: 20180116
